FAERS Safety Report 12382356 (Version 1)
Quarter: 2016Q2

REPORT INFORMATION
  Report Type: Spontaneous
  Country: US (occurrence: US)
  Receive Date: 20160518
  Receipt Date: 20160518
  Transmission Date: 20160815
  Serious: No
  Sender: FDA-Public Use
  Company Number: US-PERRIGO-15US007929

PATIENT
  Age: 57 Year
  Sex: Male
  Weight: 72.56 kg

DRUGS (2)
  1. MICONAZOLE 3 COMBINATION PACK [Suspect]
     Active Substance: MICONAZOLE NITRATE
     Indication: GENITAL DISCOMFORT
     Dosage: 1 SMALL APPLICATION, BID
     Route: 061
     Dates: start: 20150503, end: 20150531
  2. MICONAZOLE 3 COMBINATION PACK [Suspect]
     Active Substance: MICONAZOLE NITRATE
     Indication: PENILE SWELLING
     Dosage: 1 SMALL APPLICATION, BID
     Route: 061
     Dates: start: 20150729

REACTIONS (2)
  - Off label use [Not Recovered/Not Resolved]
  - No adverse event [Unknown]

NARRATIVE: CASE EVENT DATE: 20150530
